FAERS Safety Report 7049736-7 (Version None)
Quarter: 2010Q4

REPORT INFORMATION
  Report Type: 
  Country: None (occurrence: None)
  Receive Date: 20101018
  Receipt Date: 20101008
  Transmission Date: 20110411
  Serious: Yes (Hospitalization)
  Sender: FDA-Public Use
  Company Number: A0887158A

PATIENT
  Age: 57 Year
  Sex: Male

DRUGS (2)
  1. AVANDIA [Suspect]
     Route: 048
     Dates: start: 20030301, end: 20070901
  2. AVANDAMET [Suspect]
     Route: 048
     Dates: start: 20051017, end: 20051229

REACTIONS (1)
  - MYOCARDIAL INFARCTION [None]
